FAERS Safety Report 25226452 (Version 2)
Quarter: 2025Q2

REPORT INFORMATION
  Report Type: Spontaneous
  Country: SE (occurrence: SE)
  Receive Date: 20250422
  Receipt Date: 20250429
  Transmission Date: 20250717
  Serious: Yes (Life-Threatening)
  Sender: MYLAN
  Company Number: None

PATIENT
  Age: 70 Year
  Sex: Male
  Weight: 100 kg

DRUGS (20)
  1. ATORVASTATIN [Suspect]
     Active Substance: ATORVASTATIN
     Indication: Coronary artery disease
     Dosage: 40 MILLIGRAM, QD, 1 TABLET DAILY
     Dates: start: 20250303, end: 20250317
  2. ATORVASTATIN [Suspect]
     Active Substance: ATORVASTATIN
     Dosage: 40 MILLIGRAM, QD, 1 TABLET DAILY
     Route: 065
     Dates: start: 20250303, end: 20250317
  3. ATORVASTATIN [Suspect]
     Active Substance: ATORVASTATIN
     Dosage: 40 MILLIGRAM, QD, 1 TABLET DAILY
     Route: 065
     Dates: start: 20250303, end: 20250317
  4. ATORVASTATIN [Suspect]
     Active Substance: ATORVASTATIN
     Dosage: 40 MILLIGRAM, QD, 1 TABLET DAILY
     Dates: start: 20250303, end: 20250317
  5. Eplerenone sandoz [Concomitant]
  6. Eplerenone sandoz [Concomitant]
     Route: 065
  7. Eplerenone sandoz [Concomitant]
     Route: 065
  8. Eplerenone sandoz [Concomitant]
  9. CANDESARTAN [Concomitant]
     Active Substance: CANDESARTAN
  10. CANDESARTAN [Concomitant]
     Active Substance: CANDESARTAN
     Route: 065
  11. CANDESARTAN [Concomitant]
     Active Substance: CANDESARTAN
     Route: 065
  12. CANDESARTAN [Concomitant]
     Active Substance: CANDESARTAN
  13. JARDIANCE [Concomitant]
     Active Substance: EMPAGLIFLOZIN
  14. JARDIANCE [Concomitant]
     Active Substance: EMPAGLIFLOZIN
     Route: 065
  15. JARDIANCE [Concomitant]
     Active Substance: EMPAGLIFLOZIN
     Route: 065
  16. JARDIANCE [Concomitant]
     Active Substance: EMPAGLIFLOZIN
  17. ELIQUIS [Concomitant]
     Active Substance: APIXABAN
  18. ELIQUIS [Concomitant]
     Active Substance: APIXABAN
     Route: 065
  19. ELIQUIS [Concomitant]
     Active Substance: APIXABAN
     Route: 065
  20. ELIQUIS [Concomitant]
     Active Substance: APIXABAN

REACTIONS (2)
  - Hepatic failure [Not Recovered/Not Resolved]
  - Renal failure [Not Recovered/Not Resolved]

NARRATIVE: CASE EVENT DATE: 20250318
